FAERS Safety Report 19421833 (Version 1)
Quarter: 2021Q2

REPORT INFORMATION
  Report Type: Spontaneous
  Country: HR (occurrence: HR)
  Receive Date: 20210615
  Receipt Date: 20210615
  Transmission Date: 20210717
  Serious: Yes (Other)
  Sender: FDA-Public Use
  Company Number: HR-B.I. PHARMACEUTICALS,INC./RIDGEFIELD-2021-BI-108073

PATIENT
  Age: 67 Year
  Sex: Male

DRUGS (3)
  1. VARGATEF [Suspect]
     Active Substance: NINTEDANIB
  2. DOCETAXEL. [Concomitant]
     Active Substance: DOCETAXEL
     Indication: ADENOCARCINOMA
  3. VARGATEF [Suspect]
     Active Substance: NINTEDANIB
     Indication: ADENOCARCINOMA

REACTIONS (2)
  - Anaemia [Unknown]
  - Hepatic enzyme increased [Unknown]
